FAERS Safety Report 4639307-1 (Version None)
Quarter: 2005Q2

REPORT INFORMATION
  Report Type: 
  Country: None (occurrence: None)
  Receive Date: 20050418
  Receipt Date: 20050405
  Transmission Date: 20051028
  Serious: Yes (Hospitalization)
  Sender: FDA-Public Use
  Company Number: HQWYE158916MAR05

PATIENT
  Age: 49 Year
  Sex: Female
  Weight: 65.38 kg

DRUGS (2)
  1. PREMPRO [Suspect]
     Indication: MENOPAUSE
     Dosage: 0.625MG / 2.5 MG DAILY, ORAL
     Route: 048
     Dates: start: 19950301, end: 20050314
  2. LOTENSIN [Concomitant]

REACTIONS (4)
  - ABDOMINAL PAIN UPPER [None]
  - CHROMATURIA [None]
  - LIVER DISORDER [None]
  - URINE ODOUR ABNORMAL [None]
